FAERS Safety Report 6646224-4 (Version None)
Quarter: 2010Q1

REPORT INFORMATION
  Report Type: 
  Country: None (occurrence: None)
  Receive Date: 20100322
  Receipt Date: 20100322
  Transmission Date: 20100710
  Serious: Yes (Other)
  Sender: FDA-Public Use
  Company Number: None

PATIENT
  Sex: Female
  Weight: 72.5755 kg

DRUGS (1)
  1. SERTRALINE HCL [Suspect]
     Indication: DEPRESSION
     Dosage: 50 MG 1 A DAY
     Dates: start: 20091001, end: 20100101

REACTIONS (5)
  - CHEST DISCOMFORT [None]
  - LIP EXFOLIATION [None]
  - NIGHTMARE [None]
  - SWOLLEN TONGUE [None]
  - URTICARIA [None]
